FAERS Safety Report 5231230-7 (Version None)
Quarter: 2007Q1

REPORT INFORMATION
  Report Type: 
  Country: None (occurrence: None)
  Receive Date: 20070206
  Receipt Date: 20070129
  Transmission Date: 20070707
  Serious: Yes (Hospitalization, Disabling)
  Sender: FDA-Public Use
  Company Number: GR-JNJFOC-20070107675

PATIENT
  Sex: Female
  Weight: 68 kg

DRUGS (7)
  1. FENTANYL TRANSDERMAL SYSTEM [Suspect]
     Indication: DRUG USE FOR UNKNOWN INDICATION
     Route: 062
  2. SUNITINIB MALATE [Suspect]
     Indication: METASTATIC RENAL CELL CARCINOMA
     Route: 048
  3. ONDANSETRON HCL [Suspect]
     Indication: DRUG USE FOR UNKNOWN INDICATION
     Route: 048
  4. METOCLOPRAMIDE HYDROCHLORIDE [Concomitant]
     Route: 048
  5. CODEINE [Concomitant]
     Route: 054
  6. OMEPRAZOLE [Concomitant]
     Route: 048
  7. GLYCERIN [Concomitant]
     Route: 054

REACTIONS (6)
  - ABDOMINAL DISTENSION [None]
  - ABDOMINAL PAIN [None]
  - ASCITES [None]
  - CONSTIPATION [None]
  - FLUID INTAKE RESTRICTION [None]
  - VOMITING [None]
